FAERS Safety Report 14618391 (Version 1)
Quarter: 2018Q1

REPORT INFORMATION
  Report Type: Spontaneous
  Country: ES (occurrence: ES)
  Receive Date: 20180309
  Receipt Date: 20180309
  Transmission Date: 20180509
  Serious: Yes (Other)
  Sender: FDA-Public Use
  Company Number: ES-MERCK KGAA-2043434

PATIENT
  Age: 74 Year
  Sex: Female

DRUGS (7)
  1. RISPERIDONE. [Suspect]
     Active Substance: RISPERIDONE
     Route: 048
  2. INVEGA [Suspect]
     Active Substance: PALIPERIDONE
     Route: 048
  3. VENLAFAXINE [Suspect]
     Active Substance: VENLAFAXINE HYDROCHLORIDE
     Route: 048
  4. ALPRAZOLAM. [Suspect]
     Active Substance: ALPRAZOLAM
  5. OXCARBAZEPINE. [Suspect]
     Active Substance: OXCARBAZEPINE
  6. NOVOTHYROX [Suspect]
     Active Substance: LEVOTHYROXINE SODIUM
     Indication: PRODUCT USED FOR UNKNOWN INDICATION
     Route: 048
  7. INVEGA [Suspect]
     Active Substance: PALIPERIDONE
     Route: 048

REACTIONS (17)
  - Depression [Recovered/Resolved]
  - Abdominal discomfort [Not Recovered/Not Resolved]
  - Abdominal pain [Unknown]
  - Psychotic symptom [Not Recovered/Not Resolved]
  - Weight increased [Unknown]
  - Abnormal sensation in eye [Recovered/Resolved]
  - Back pain [Not Recovered/Not Resolved]
  - Phobia [Unknown]
  - Hallucination, auditory [Recovered/Resolved]
  - Wound [Unknown]
  - Headache [Unknown]
  - Personality disorder [Unknown]
  - Treatment noncompliance [Unknown]
  - Dry eye [Unknown]
  - Insomnia [Recovered/Resolved]
  - Gingival pain [Not Recovered/Not Resolved]
  - Abnormal behaviour [Recovered/Resolved]

NARRATIVE: CASE EVENT DATE: 201506
